FAERS Safety Report 6123666-7 (Version None)
Quarter: 2009Q1

REPORT INFORMATION
  Report Type: 
  Country: None (occurrence: None)
  Receive Date: 20090319
  Receipt Date: 20090310
  Transmission Date: 20090719
  Serious: Yes (Other)
  Sender: FDA-Public Use
  Company Number: SE-JNJFOC-20090302429

PATIENT
  Age: 44 Year
  Sex: Female

DRUGS (1)
  1. PROPULSID [Suspect]
     Indication: CONSTIPATION
     Route: 065

REACTIONS (6)
  - ALOPECIA [None]
  - INTUSSUSCEPTION [None]
  - MUSCLE ATROPHY [None]
  - POLLAKIURIA [None]
  - SYNCOPE [None]
  - TACHYCARDIA [None]
